FAERS Safety Report 4791763-4 (Version None)
Quarter: 2005Q4

REPORT INFORMATION
  Report Type: 
  Country: None (occurrence: None)
  Receive Date: 20051004
  Receipt Date: 20050929
  Transmission Date: 20060501
  Serious: Yes (Death)
  Sender: FDA-Public Use
  Company Number: GAM-044-05-USA

PATIENT
  Age: 86 Year
  Sex: Male
  Weight: 63 kg

DRUGS (5)
  1. OCTAGAM [Suspect]
     Indication: SEPTIC NECROSIS
     Dosage: SEE IMAGE
     Route: 042
     Dates: start: 20010701, end: 20050702
  2. OCTAGAM [Suspect]
     Indication: SEPTIC SHOCK
     Dosage: SEE IMAGE
     Route: 042
     Dates: start: 20010701, end: 20050702
  3. OCTAGAM [Suspect]
     Indication: SEPTIC NECROSIS
     Dosage: SEE IMAGE
     Route: 042
     Dates: start: 20020701, end: 20050703
  4. OCTAGAM [Suspect]
     Indication: SEPTIC SHOCK
     Dosage: SEE IMAGE
     Route: 042
     Dates: start: 20020701, end: 20050703
  5. . [Suspect]

REACTIONS (3)
  - BLOOD GLUCOSE DECREASED [None]
  - COMA [None]
  - HYPOTONIA [None]
